FAERS Safety Report 10966450 (Version 2)
Quarter: 2015Q2

REPORT INFORMATION
  Report Type: Spontaneous
  Country: TZ (occurrence: TZ)
  Receive Date: 20150330
  Receipt Date: 20150401
  Transmission Date: 20150821
  Serious: Yes (Other)
  Sender: FDA-Public Use
  Company Number: TZ-009507513-1503TZA001532

PATIENT
  Age: 33 Year
  Sex: Female

DRUGS (1)
  1. IMPLANON [Suspect]
     Active Substance: ETONOGESTREL
     Indication: CONTRACEPTION
     Dosage: 68 MG, SINGLE DOSE/ 3 YEARS; IN HER LEFT ARM
     Route: 059
     Dates: start: 20131212, end: 20150130

REACTIONS (3)
  - Abortion induced [Unknown]
  - Unintended pregnancy [Recovered/Resolved]
  - Breast feeding [Unknown]

NARRATIVE: CASE EVENT DATE: 20141225
